FAERS Safety Report 7999933-9 (Version None)
Quarter: 2011Q4

REPORT INFORMATION
  Report Type: 
  Country: None (occurrence: None)
  Receive Date: 20111222
  Receipt Date: 20111214
  Transmission Date: 20120403
  Serious: No
  Sender: FDA-Public Use
  Company Number: US-BIOGENIDEC-2011BI047382

PATIENT
  Sex: Female

DRUGS (2)
  1. TYSABRI [Suspect]
     Indication: MULTIPLE SCLEROSIS
     Route: 042
     Dates: start: 20110316, end: 20110727
  2. TYSABRI [Suspect]
     Route: 042
     Dates: end: 20111001

REACTIONS (3)
  - HYPOAESTHESIA [None]
  - VISUAL IMPAIRMENT [None]
  - FALL [None]
